FAERS Safety Report 7516365-8 (Version None)
Quarter: 2011Q2

REPORT INFORMATION
  Report Type: 
  Country: None (occurrence: None)
  Receive Date: 20110601
  Receipt Date: 20110518
  Transmission Date: 20111010
  Serious: Yes (Other)
  Sender: FDA-Public Use
  Company Number: US-ELI_LILLY_AND_COMPANY-US201105006129

PATIENT
  Age: 68 Year
  Sex: Female

DRUGS (8)
  1. TARKA [Concomitant]
  2. ASPIRIN [Concomitant]
     Dosage: 81 MG, QD
  3. PRAMIPEXOLE DIHYDROCHLORIDE [Concomitant]
  4. HYDROCHLOROTHIAZIDE [Concomitant]
  5. CYMBALTA [Suspect]
     Indication: DEPRESSION
     Dosage: 60 MG, QD
  6. SINGULAIR [Concomitant]
  7. CRESTOR [Concomitant]
     Dosage: UNK
     Dates: start: 20110501
  8. HYDROCODONE BITARTRATE [Concomitant]
     Indication: PAIN

REACTIONS (4)
  - CRYING [None]
  - FATIGUE [None]
  - EMOTIONAL DISTRESS [None]
  - KNEE ARTHROPLASTY [None]
